FAERS Safety Report 9651834 (Version 1)
Quarter: 2013Q4

REPORT INFORMATION
  Report Type: Spontaneous
  Country: US (occurrence: US)
  Receive Date: 20131029
  Receipt Date: 20131029
  Transmission Date: 20140711
  Serious: No
  Sender: FDA-Public Use
  Company Number: US-ENDO PHARMACEUTICALS INC.-LACT20110014

PATIENT
  Sex: Female
  Weight: 60.84 kg

DRUGS (1)
  1. LACTULOSE ORAL SOLUTION [Suspect]
     Indication: CONSTIPATION
     Route: 048

REACTIONS (3)
  - Weight increased [Unknown]
  - Fluid retention [Unknown]
  - Drug ineffective [Unknown]
